FAERS Safety Report 17186467 (Version 2)
Quarter: 2020Q1

REPORT INFORMATION
  Report Type: Spontaneous
  Country: JP (occurrence: JP)
  Receive Date: 20191220
  Receipt Date: 20200109
  Transmission Date: 20200409
  Serious: Yes (Other)
  Sender: FDA-Public Use
  Company Number: JP-FERRINGPH-2019FE08536

PATIENT
  Sex: Female

DRUGS (1)
  1. MINIRINMELT [Suspect]
     Active Substance: DESMOPRESSIN ACETATE
     Indication: DIABETES INSIPIDUS
     Dosage: 60 UG
     Route: 065

REACTIONS (4)
  - Pulmonary oedema [Unknown]
  - Labelled drug-disease interaction medication error [Unknown]
  - Contraindicated product prescribed [Unknown]
  - Off label use [Unknown]
